FAERS Safety Report 8104158-2 (Version None)
Quarter: 2012Q1

REPORT INFORMATION
  Report Type: 
  Country: None (occurrence: None)
  Receive Date: 20120201
  Receipt Date: 20120119
  Transmission Date: 20120608
  Serious: Yes (Other)
  Sender: FDA-Public Use
  Company Number: GB-GILEAD-2012-0050204

PATIENT
  Age: 50 Year
  Sex: Male

DRUGS (2)
  1. LETAIRIS [Suspect]
     Dosage: 5 MG, QD
     Route: 048
  2. LETAIRIS [Suspect]
     Indication: PULMONARY ARTERIAL HYPERTENSION
     Dosage: 10 MG, QD
     Route: 048

REACTIONS (1)
  - HEPATIC CIRRHOSIS [None]
